FAERS Safety Report 23661802 (Version 2)
Quarter: 2024Q1

REPORT INFORMATION
  Report Type: Other
  Country: PK (occurrence: None)
  Receive Date: 20240322
  Receipt Date: 20240327
  Transmission Date: 20240410
  Serious: Yes (Death)
  Sender: FDA-Public Use
  Company Number: PK-ROCHE-3449991

PATIENT
  Age: 38 Year
  Sex: Female

DRUGS (1)
  1. RITUXIMAB [Suspect]
     Active Substance: RITUXIMAB
     Indication: Diffuse large B-cell lymphoma
     Route: 041
     Dates: start: 20231023

REACTIONS (2)
  - Product prescribing error [Unknown]
  - Death [Fatal]

NARRATIVE: CASE EVENT DATE: 20231026
